FAERS Safety Report 26077307 (Version 1)
Quarter: 2025Q4

REPORT INFORMATION
  Report Type: Spontaneous
  Country: EU (occurrence: EU)
  Receive Date: 20251121
  Receipt Date: 20251121
  Transmission Date: 20260117
  Serious: Yes (Hospitalization, Other)
  Sender: INSUD PHARMA
  Company Number: EU-INSUD PHARMA-2511FR09642

PATIENT

DRUGS (2)
  1. FOSFOMYCIN [Suspect]
     Active Substance: FOSFOMYCIN
     Indication: Pollakiuria
     Dosage: 3 GRAM, SINGLE DOSE
     Route: 065
  2. FOSFOMYCIN [Suspect]
     Active Substance: FOSFOMYCIN
     Indication: Dysuria

REACTIONS (9)
  - Kounis syndrome [Unknown]
  - Acute myocardial infarction [Unknown]
  - Anaphylactic reaction [Recovering/Resolving]
  - Anaphylactoid reaction [Recovering/Resolving]
  - Rash maculo-papular [Recovering/Resolving]
  - Urticaria [Recovering/Resolving]
  - Pruritus [Recovering/Resolving]
  - Skin plaque [Recovering/Resolving]
  - Diarrhoea [Recovered/Resolved]
